FAERS Safety Report 11342620 (Version 6)
Quarter: 2015Q3

REPORT INFORMATION
  Report Type: Spontaneous
  Country: IT (occurrence: IT)
  Receive Date: 20150805
  Receipt Date: 20150902
  Transmission Date: 20151125
  Serious: Yes (Hospitalization)
  Sender: FDA-Public Use
  Company Number: IT-TEVA-582832ACC

PATIENT
  Age: 75 Year
  Sex: Female

DRUGS (11)
  1. LORAZEPAM. [Concomitant]
     Active Substance: LORAZEPAM
     Route: 048
  2. EUTIROX - 100 MICROGRAMMI COMPRESSE [Concomitant]
     Route: 048
  3. SIMVASTATIN. [Suspect]
     Active Substance: SIMVASTATIN
     Indication: PRODUCT USED FOR UNKNOWN INDICATION
     Dosage: 20 MILLIGRAM DAILY;
     Route: 048
     Dates: end: 20150704
  4. METFORMIN [Concomitant]
     Active Substance: METFORMIN HYDROCHLORIDE
     Route: 048
  5. VOLTAREN [Suspect]
     Active Substance: DICLOFENAC SODIUM
     Indication: SPONDYLOARTHROPATHY
     Dosage: 75 MILLIGRAM DAILY;
     Route: 030
     Dates: start: 20150622, end: 20150704
  6. MUSCORIL - 4MG/2 ML SOLUZIONE INIETTABILE [Concomitant]
     Indication: SCIATICA
     Route: 030
  7. CARDIOASPIRIN - 100 MG COMPRESSE GASTRORESISTENTI [Concomitant]
     Active Substance: ASPIRIN
     Dosage: 100 MG; GASTRORESISTANT TABLET
     Route: 048
  8. ZOLOFT - 50 MG COMPRESSE RIVESTITE CON FILM [Concomitant]
     Dosage: 50 MG; TABLET DIVISIBLE
     Route: 048
  9. DEPALGOS [Concomitant]
     Active Substance: ACETAMINOPHEN\OXYCODONE HYDROCHLORIDE
     Indication: SCIATICA
  10. CONCOR - 10 MG COMPRESSE [Concomitant]
     Route: 048
  11. COMBISARTAN - 160/25 MG COMPRESSE RIVESTITE CON FILM [Concomitant]
     Dosage: (VALSARTAN: 160MG/ HYDROCHLOROTHIAZIDE: 50MG)
     Route: 048

REACTIONS (6)
  - Liver injury [Recovered/Resolved]
  - Multi-organ failure [Recovered/Resolved]
  - Bradyphrenia [Unknown]
  - Acute kidney injury [Recovered/Resolved]
  - Pancreatitis [Recovered/Resolved]
  - Rhabdomyolysis [Recovered/Resolved]

NARRATIVE: CASE EVENT DATE: 20150208
